FAERS Safety Report 23968699 (Version 1)
Quarter: 2024Q2

REPORT INFORMATION
  Report Type: Spontaneous
  Country: US (occurrence: US)
  Receive Date: 20240612
  Receipt Date: 20240612
  Transmission Date: 20240715
  Serious: No
  Sender: FDA-Public Use
  Company Number: US-SA-SAC20240606000317

PATIENT
  Age: 48 Year
  Sex: Female

DRUGS (2)
  1. DUPIXENT [Suspect]
     Active Substance: DUPILUMAB
     Indication: Asthma
     Dosage: 600 MG 1X
     Route: 058
     Dates: start: 20240430, end: 20240430
  2. DUPIXENT [Suspect]
     Active Substance: DUPILUMAB
     Dosage: 300 MG QOW
     Route: 058
     Dates: start: 20240514

REACTIONS (8)
  - Skin erosion [Unknown]
  - Condition aggravated [Unknown]
  - Eyelid pain [Unknown]
  - Condition aggravated [Unknown]
  - Periorbital pain [Unknown]
  - Condition aggravated [Unknown]
  - Urticaria [Unknown]
  - Eye irritation [Unknown]

NARRATIVE: CASE EVENT DATE: 20240101
